FAERS Safety Report 19187537 (Version 9)
Quarter: 2022Q4

REPORT INFORMATION
  Report Type: Report from Study
  Country: JP (occurrence: JP)
  Receive Date: 20210427
  Receipt Date: 20221021
  Transmission Date: 20230113
  Serious: Yes (Hospitalization, Other)
  Sender: FDA-Public Use
  Company Number: JP-ABBVIE-17K-087-2009155-00

PATIENT
  Age: 80 Year
  Sex: Female
  Weight: 34 kg

DRUGS (4)
  1. CARBIDOPA\LEVODOPA [Suspect]
     Active Substance: CARBIDOPA\LEVODOPA
     Indication: Parkinson^s disease
     Route: 050
     Dates: start: 20170519, end: 20170525
  2. CARBIDOPA\LEVODOPA [Suspect]
     Active Substance: CARBIDOPA\LEVODOPA
     Dosage: MD: 6.4 ML, CD: 2.4 ML/HR 16 HRS, ED: 1 ML/UNIT 0
     Route: 050
     Dates: start: 20170525
  3. CARBIDOPA\LEVODOPA [Suspect]
     Active Substance: CARBIDOPA\LEVODOPA
     Dosage: MD: 6.4 ML, CD: 2.4 ML/HR ? 16 HRS, ED: 1 ML/UNIT ? 0
     Route: 050
     Dates: start: 20170519
  4. ISTRADEFYLLINE [Concomitant]
     Active Substance: ISTRADEFYLLINE
     Indication: Parkinson^s disease
     Dosage: 40 MILLIGRAM
     Route: 048

REACTIONS (14)
  - Coma [Unknown]
  - Decubitus ulcer [Unknown]
  - Musculoskeletal stiffness [Unknown]
  - Chest discomfort [Recovered/Resolved]
  - Illness anxiety disorder [Unknown]
  - Off label use [Unknown]
  - Device occlusion [Unknown]
  - Dyspnoea [Unknown]
  - Malaise [Recovered/Resolved]
  - Malaise [Not Recovered/Not Resolved]
  - Salivary hypersecretion [Recovering/Resolving]
  - Drug ineffective [Unknown]
  - On and off phenomenon [Unknown]
  - Device use issue [Unknown]

NARRATIVE: CASE EVENT DATE: 20170101
